FAERS Safety Report 21202579 (Version 1)
Quarter: 2022Q3

REPORT INFORMATION
  Report Type: Spontaneous
  Country: US (occurrence: US)
  Receive Date: 20220811
  Receipt Date: 20220811
  Transmission Date: 20221026
  Serious: No
  Sender: FDA-Public Use
  Company Number: US-OTSUKA-2022_028528

PATIENT
  Sex: Female
  Weight: 61.23 kg

DRUGS (3)
  1. REXULTI [Suspect]
     Active Substance: BREXPIPRAZOLE
     Indication: Depression
     Dosage: 1 MG
     Route: 065
     Dates: start: 202204
  2. REXULTI [Suspect]
     Active Substance: BREXPIPRAZOLE
     Dosage: 0.5 MG
     Route: 065
     Dates: start: 202205
  3. CYMBALTA [Suspect]
     Active Substance: DULOXETINE HYDROCHLORIDE
     Indication: Depression
     Dosage: 60 MG TWO CAPSULES DAILY
     Route: 065

REACTIONS (7)
  - Depression [Not Recovered/Not Resolved]
  - Weight fluctuation [Unknown]
  - Hyperphagia [Unknown]
  - Apathy [Not Recovered/Not Resolved]
  - Product dose omission issue [Unknown]
  - Therapeutic response unexpected [Unknown]
  - Inability to afford medication [Unknown]
